FAERS Safety Report 7841247 (Version 5)
Quarter: 2014Q2

REPORT INFORMATION
  Report Type: Spontaneous
  Country: US (occurrence: US)
  Receive Date: 20110304
  Receipt Date: 20131024
  Transmission Date: 20141212
  Serious: Yes (Death, Hospitalization, Other)
  Sender: FDA-Public Use
  Company Number: US-PFIZER INC-2010057678

PATIENT
  Age: 76 Year
  Sex: Female

DRUGS (3)
  1. DILANTIN [Suspect]
     Indication: CONVULSION
     Dosage: UNK
     Route: 048
     Dates: start: 20080312, end: 20080316
  2. DILANTIN [Suspect]
     Indication: CONVULSION
     Dosage: 100 MG, 3X/DAY (EVERY 8 HOURS)
     Route: 042
     Dates: start: 20080305, end: 20080316
  3. DECADRON [Concomitant]
     Dosage: UNK
     Dates: start: 20080312

REACTIONS (1)
  - Stevens-Johnson syndrome [Fatal]
